FAERS Safety Report 23521327 (Version 1)
Quarter: 2024Q1

REPORT INFORMATION
  Report Type: 
  Country: None (occurrence: None)
  Receive Date: 20240214
  Receipt Date: 20240214
  Transmission Date: 20240410
  Serious: No
  Sender: FDA-Public Use
  Company Number: SA-ROCHE-3300624

PATIENT
  Weight: 19.8 kg

DRUGS (2)
  1. EVRYSDI [Suspect]
     Active Substance: RISDIPLAM
     Dates: start: 20230105
  2. HYDROXYUREA [Concomitant]
     Active Substance: HYDROXYUREA
     Dates: start: 20240101

REACTIONS (13)
  - Headache [None]
  - Pyrexia [None]
  - Full blood count abnormal [None]
  - Eye inflammation [None]
  - Diarrhoea [None]
  - Accidental overdose [None]
  - Product administration error [None]
  - Product dose omission issue [None]
  - Product complaint [None]
  - Rhinorrhoea [None]
  - Epistaxis [None]
  - Abdominal pain upper [None]
  - Nasopharyngitis [None]

NARRATIVE: CASE EVENT DATE: 20230225
